FAERS Safety Report 10169749 (Version 1)
Quarter: 2014Q2

REPORT INFORMATION
  Report Type: Report from Study
  Country: US (occurrence: US)
  Receive Date: 20140513
  Receipt Date: 20140513
  Transmission Date: 20141212
  Serious: Yes (Hospitalization)
  Sender: FDA-Public Use
  Company Number: US-ACTELION-A-NJ2014-98583

PATIENT
  Age: 42 Year
  Sex: Female

DRUGS (3)
  1. TRACLEER [Suspect]
     Indication: CARDIAC SEPTAL DEFECT
     Dosage: UNK
     Route: 048
  2. SILDENAFIL [Concomitant]
  3. COUMADIN [Concomitant]

REACTIONS (1)
  - Fall [Unknown]
